FAERS Safety Report 17809082 (Version 1)
Quarter: 2020Q2

REPORT INFORMATION
  Report Type: Spontaneous
  Country: US (occurrence: US)
  Receive Date: 20200520
  Receipt Date: 20200520
  Transmission Date: 20200714
  Serious: Yes (Life-Threatening, Hospitalization)
  Sender: FDA-Public Use
  Company Number: US-MYLANLABS-2020M1049933

PATIENT
  Age: 58 Year
  Sex: Male

DRUGS (1)
  1. HYDRALAZINE [Suspect]
     Active Substance: HYDRALAZINE HYDROCHLORIDE
     Indication: HYPERTENSION
     Dosage: 100 MILLIGRAM, TID100MG THREE TIMES DAILY FOR A PROLONGED..
     Route: 065

REACTIONS (9)
  - Respiratory distress [Unknown]
  - Haematuria [Unknown]
  - Cerebrovascular accident [Unknown]
  - Anaemia [Unknown]
  - Proteinuria [Unknown]
  - Acute kidney injury [Unknown]
  - Mental status changes [Not Recovered/Not Resolved]
  - Anti-neutrophil cytoplasmic antibody positive vasculitis [Recovering/Resolving]
  - Pancytopenia [Unknown]
